FAERS Safety Report 14918425 (Version 2)
Quarter: 2018Q2

REPORT INFORMATION
  Report Type: Spontaneous
  Country: CA (occurrence: CA)
  Receive Date: 20180521
  Receipt Date: 20180626
  Transmission Date: 20180711
  Serious: Yes (Other)
  Sender: FDA-Public Use
  Company Number: CA-PFIZER INC-2018089775

PATIENT
  Age: 31 Year
  Sex: Male
  Weight: 127 kg

DRUGS (5)
  1. SANDOSTATIN [Concomitant]
     Active Substance: OCTREOTIDE ACETATE
     Indication: ACROMEGALY
     Dosage: 30 (UNIT NOT REPORTED), MONTHLY
     Route: 030
     Dates: start: 201703
  2. SOMAVERT [Suspect]
     Active Substance: PEGVISOMANT
     Indication: ACROMEGALY
     Dosage: 10 MG, DAILY
     Route: 058
  3. SOMAVERT [Suspect]
     Active Substance: PEGVISOMANT
     Dosage: 15 MG, ALTERNATE DAY (EVERY OTHER DAY)
     Route: 058
     Dates: start: 20101020, end: 201802
  4. RAMIPRIL. [Concomitant]
     Active Substance: RAMIPRIL
     Indication: HYPERTENSION
     Dosage: 10 (UNIT NOT REPORTED), DAILY
     Route: 048
     Dates: start: 2017
  5. OXYCOCET [Concomitant]
     Active Substance: ACETAMINOPHEN\OXYCODONE HYDROCHLORIDE
     Indication: PAIN
     Dosage: UNK, AS NEEDED
     Route: 048
     Dates: start: 2017

REACTIONS (5)
  - Ear infection [Not Recovered/Not Resolved]
  - Faeces discoloured [Recovering/Resolving]
  - Lipohypertrophy [Unknown]
  - Injection site induration [Recovering/Resolving]
  - Ear pain [Not Recovered/Not Resolved]
